FAERS Safety Report 5845315-5 (Version None)
Quarter: 2008Q3

REPORT INFORMATION
  Report Type: 
  Country: None (occurrence: None)
  Receive Date: 20080731
  Receipt Date: 20080521
  Transmission Date: 20090109
  Serious: No
  Sender: FDA-Public Use
  Company Number: US200805004602

PATIENT
  Age: 57 Year
  Sex: Male

DRUGS (8)
  1. BYETTA [Suspect]
     Indication: DIABETES MELLITUS
     Dosage: 5 UG, 2/D, SUBCUTANEOUS
     Route: 058
     Dates: start: 20080501
  2. GLIPIZIDE [Concomitant]
  3. ASPIRIN [Concomitant]
  4. PROTONIX [Concomitant]
  5. COREG [Concomitant]
  6. ZESTRIL [Concomitant]
  7. LIPITOR [Concomitant]
  8. EYE DROPS /USA/ (TETRYZOLINE HYDROCHLORIDE) [Concomitant]

REACTIONS (2)
  - DIZZINESS [None]
  - HYPOTENSION [None]
